FAERS Safety Report 24845020 (Version 2)
Quarter: 2025Q1

REPORT INFORMATION
  Report Type: Spontaneous
  Country: FR (occurrence: FR)
  Receive Date: 20250115
  Receipt Date: 20250212
  Transmission Date: 20250409
  Serious: Yes (Other)
  Sender: PFIZER
  Company Number: FR-BIOGARAN-B24002306

PATIENT
  Age: 51 Year
  Sex: Female

DRUGS (4)
  1. VORICONAZOLE [Suspect]
     Active Substance: VORICONAZOLE
     Indication: Liver abscess
  2. VORICONAZOLE [Suspect]
     Active Substance: VORICONAZOLE
     Indication: Systemic candida
     Route: 048
  3. TACROLIMUS [Concomitant]
     Active Substance: TACROLIMUS
     Indication: Immunosuppressant drug therapy
  4. CASPOFUNGIN [Concomitant]
     Active Substance: CASPOFUNGIN
     Dates: end: 202112

REACTIONS (7)
  - Gastric perforation [Unknown]
  - Peritonitis [Unknown]
  - Hepatic artery aneurysm [Unknown]
  - Gastrointestinal haemorrhage [Unknown]
  - Renal aneurysm [Unknown]
  - Hepatic cytolysis [Unknown]
  - Overdose [Unknown]

NARRATIVE: CASE EVENT DATE: 20220201
